FAERS Safety Report 13746239 (Version 1)
Quarter: 2017Q3

REPORT INFORMATION
  Report Type: Spontaneous
  Country: SG (occurrence: US)
  Receive Date: 20170712
  Receipt Date: 20170712
  Transmission Date: 20171127
  Serious: Yes (Hospitalization)
  Sender: FDA-Public Use
  Company Number: None

PATIENT
  Age: 56 Year
  Sex: Male
  Weight: 49.7 kg

DRUGS (2)
  1. CISPLATIN. [Suspect]
     Active Substance: CISPLATIN
     Dates: end: 20170620
  2. 5-FLUOROURACIL (5-FU) [Suspect]
     Active Substance: FLUOROURACIL
     Dates: end: 20170624

REACTIONS (11)
  - Abdominal pain upper [None]
  - Chest pain [None]
  - Anaemia [None]
  - Dyspnoea exertional [None]
  - Palpitations [None]
  - Fatigue [None]
  - Dehydration [None]
  - Oesophagitis [None]
  - Campylobacter test positive [None]
  - Gastric ulcer [None]
  - Faeces discoloured [None]

NARRATIVE: CASE EVENT DATE: 20170628
